FAERS Safety Report 9015235 (Version 1)
Quarter: 2013Q1

REPORT INFORMATION
  Report Type: Spontaneous
  Country: US (occurrence: US)
  Receive Date: 20130116
  Receipt Date: 20130116
  Transmission Date: 20140127
  Serious: Yes (Other)
  Sender: FDA-Public Use
  Company Number: US-009507513-1012USA00739

PATIENT
  Age: 7 Year
  Sex: Female
  Weight: 20.41 kg

DRUGS (1)
  1. SINGULAIR [Suspect]
     Indication: ASTHMA
     Dosage: 5 MG, QD
     Route: 048
     Dates: start: 20100201, end: 20100307

REACTIONS (10)
  - Abnormal behaviour [Recovering/Resolving]
  - Asthma [Not Recovered/Not Resolved]
  - Crying [Recovering/Resolving]
  - Disturbance in attention [Recovering/Resolving]
  - Emotional disorder [Recovering/Resolving]
  - Enuresis [Recovered/Resolved]
  - Mood altered [Recovering/Resolving]
  - Nightmare [Recovered/Resolved]
  - Screaming [Recovering/Resolving]
  - Somnambulism [Recovered/Resolved]
